FAERS Safety Report 4522572-9 (Version None)
Quarter: 2004Q4

REPORT INFORMATION
  Report Type: 
  Country: None (occurrence: None)
  Receive Date: 20041207
  Receipt Date: 20041122
  Transmission Date: 20050328
  Serious: Yes (Other)
  Sender: FDA-Public Use
  Company Number: GBS041115995

PATIENT
  Age: 2 Year
  Sex: Male

DRUGS (1)
  1. CEFACLOR [Suspect]
     Dosage: 50 ML

REACTIONS (1)
  - ACCIDENTAL OVERDOSE [None]
